FAERS Safety Report 6969598-3 (Version None)
Quarter: 2010Q3

REPORT INFORMATION
  Report Type: 
  Country: None (occurrence: None)
  Receive Date: 20100902
  Receipt Date: 20100825
  Transmission Date: 20110219
  Serious: Yes (Disabling, Other)
  Sender: FDA-Public Use
  Company Number: 2010SP046201

PATIENT
  Sex: Female

DRUGS (1)
  1. DULERA TABLET [Suspect]
     Indication: ASTHMA
     Dosage: 1 DF;ONCE;INH
     Route: 055
     Dates: start: 20100823, end: 20100823

REACTIONS (2)
  - BRONCHOSPASM PARADOXICAL [None]
  - PULMONARY FUNCTION TEST DECREASED [None]
